FAERS Safety Report 20647754 (Version 3)
Quarter: 2022Q2

REPORT INFORMATION
  Report Type: Report from Study
  Country: US (occurrence: US)
  Receive Date: 20220329
  Receipt Date: 20220531
  Transmission Date: 20220720
  Serious: No
  Sender: FDA-Public Use
  Company Number: US-NOVARTISTESTPH-NVSC2022US071071

PATIENT
  Age: 89 Year
  Sex: Female

DRUGS (1)
  1. ENTRESTO [Suspect]
     Active Substance: SACUBITRIL\VALSARTAN
     Indication: Product used for unknown indication
     Dosage: 1 DOSAGE FORM, BID(97/103MG)
     Route: 048

REACTIONS (2)
  - COVID-19 [Recovering/Resolving]
  - Stent malfunction [Recovering/Resolving]

NARRATIVE: CASE EVENT DATE: 20220421
